FAERS Safety Report 4751061-1 (Version None)
Quarter: 2005Q3

REPORT INFORMATION
  Report Type: 
  Country: None (occurrence: None)
  Receive Date: 20050822
  Receipt Date: 20050808
  Transmission Date: 20060218
  Serious: Yes (Hospitalization, Other)
  Sender: FDA-Public Use
  Company Number: HQWYE769408AUG05

PATIENT
  Age: 50 Year
  Sex: Male

DRUGS (3)
  1. ADVIL [Suspect]
     Indication: ARTHROPOD STING
     Dosage: 2 TABLET 1X PER 1 DAY, ORAL
     Route: 048
     Dates: start: 20050604, end: 20050605
  2. BETADINE [Suspect]
     Indication: ARTHROPOD STING
     Dosage: TOPICAL
     Route: 061
     Dates: start: 20050604, end: 20050101
  3. PYOSTACINE (PRISTINAMYCIN, ) [Suspect]
     Indication: ARTHROPOD STING
     Dosage: 1000 MG 2X PER 1 DAY
     Dates: start: 20050604, end: 20050606

REACTIONS (14)
  - C-REACTIVE PROTEIN INCREASED [None]
  - CYTOMEGALOVIRUS ANTIBODY POSITIVE [None]
  - EOSINOPHIL COUNT INCREASED [None]
  - EPSTEIN-BARR VIRUS ANTIBODY POSITIVE [None]
  - EPSTEIN-BARR VIRUS ANTIGEN POSITIVE [None]
  - HYPERTHERMIA [None]
  - LYMPHADENOPATHY [None]
  - MYALGIA [None]
  - PARVOVIRUS B19 SEROLOGY POSITIVE [None]
  - PURPURA [None]
  - RASH ERYTHEMATOUS [None]
  - RASH MACULAR [None]
  - RASH PRURITIC [None]
  - STAPHYLOCOCCAL INFECTION [None]
